FAERS Safety Report 6261439-5 (Version None)
Quarter: 2009Q3

REPORT INFORMATION
  Report Type: 
  Country: None (occurrence: None)
  Receive Date: 20090709
  Receipt Date: 20090625
  Transmission Date: 20100115
  Serious: Yes (Other)
  Sender: FDA-Public Use
  Company Number: AU-ASTRAZENECA-2008AP06290

PATIENT
  Age: 59 Year
  Sex: Female
  Weight: 60 kg

DRUGS (4)
  1. ARIMIDEX [Suspect]
     Route: 048
     Dates: start: 20080415, end: 20080828
  2. ARIMIDEX [Interacting]
     Route: 048
     Dates: start: 20080911
  3. TOPAMAX [Interacting]
     Indication: VERTIGO
     Route: 065
     Dates: start: 20080911
  4. CARTIA XT [Concomitant]

REACTIONS (2)
  - DRUG INTERACTION [None]
  - HEPATIC ENZYME INCREASED [None]
